FAERS Safety Report 7753698-4 (Version None)
Quarter: 2011Q3

REPORT INFORMATION
  Report Type: 
  Country: None (occurrence: None)
  Receive Date: 20110915
  Receipt Date: 20110915
  Transmission Date: 20111222
  Serious: Yes (Hospitalization)
  Sender: FDA-Public Use
  Company Number: None

PATIENT
  Age: 49 Year
  Sex: Female
  Weight: 72.574 kg

DRUGS (1)
  1. ZOLOFT [Suspect]
     Indication: MENOPAUSAL SYMPTOMS
     Dosage: 25MG
     Route: 048
     Dates: start: 20110825, end: 20110907

REACTIONS (10)
  - HEADACHE [None]
  - DEPRESSION [None]
  - CHROMATOPSIA [None]
  - AGITATION [None]
  - NAUSEA [None]
  - PANIC ATTACK [None]
  - HYPERHIDROSIS [None]
  - INSOMNIA [None]
  - VISION BLURRED [None]
  - PALPITATIONS [None]
